FAERS Safety Report 16152814 (Version 2)
Quarter: 2019Q2

REPORT INFORMATION
  Report Type: Report from Study
  Country: US (occurrence: US)
  Receive Date: 20190403
  Receipt Date: 20190419
  Transmission Date: 20190711
  Serious: Yes (Death)
  Sender: FDA-Public Use
  Company Number: US-EMD SERONO-9082109

PATIENT
  Age: 15 Year
  Sex: Male
  Weight: 143 kg

DRUGS (3)
  1. BAVENCIO [Suspect]
     Active Substance: AVELUMAB
     Dosage: 4 VIALS
     Route: 042
     Dates: start: 20190308
  2. ALDOXORUBICIN [Concomitant]
     Active Substance: DOXORUBICIN
     Indication: OSTEOSARCOMA METASTATIC
  3. BAVENCIO [Suspect]
     Active Substance: AVELUMAB
     Indication: OSTEOSARCOMA METASTATIC
     Dosage: 1 VIAL FROM AV024179 BATCH AND 3 VIALS FROM AV023888 BATCH
     Route: 042
     Dates: start: 20190214

REACTIONS (3)
  - Off label use [Unknown]
  - Respiratory failure [Fatal]
  - Disease progression [Fatal]

NARRATIVE: CASE EVENT DATE: 20190308
